FAERS Safety Report 9452480 (Version 2)
Quarter: 2013Q3

REPORT INFORMATION
  Report Type: Spontaneous
  Country: US (occurrence: US)
  Receive Date: 20130812
  Receipt Date: 20130826
  Transmission Date: 20140515
  Serious: Yes (Other)
  Sender: FDA-Public Use
  Company Number: US-AMGEN-USASP2013056251

PATIENT
  Age: 57 Year
  Sex: Female

DRUGS (4)
  1. NPLATE [Suspect]
     Indication: IMMUNE THROMBOCYTOPENIC PURPURA
     Dosage: 2 MUG/KG, UNK
     Route: 065
  2. PREDNISONE [Concomitant]
  3. ASPIRIN [Concomitant]
  4. INSULIN [Concomitant]

REACTIONS (5)
  - Haemorrhage [Unknown]
  - Rib fracture [Unknown]
  - Cough [Unknown]
  - Platelet count increased [Recovered/Resolved]
  - Pain in extremity [Recovered/Resolved]
